FAERS Safety Report 5021513-8 (Version None)
Quarter: 2006Q2

REPORT INFORMATION
  Report Type: 
  Country: None (occurrence: None)
  Receive Date: 20060605
  Receipt Date: 20040811
  Transmission Date: 20061013
  Serious: Yes (Other)
  Sender: FDA-Public Use
  Company Number: CHPA2004US04016

PATIENT
  Age: 40 Year
  Sex: Female
  Weight: 74.8 kg

DRUGS (6)
  1. FERROUS SULFATE TAB [Suspect]
     Indication: ANAEMIA
     Dosage: SEE IMAGE
     Route: 048
     Dates: start: 20040728, end: 20040730
  2. FERROUS SULFATE TAB [Suspect]
     Indication: ANAEMIA
     Dosage: SEE IMAGE
     Route: 048
     Dates: start: 20050731, end: 20050731
  3. FERROUS SULFATE TAB [Suspect]
  4. ASACOL [Concomitant]
  5. NEXIUM [Concomitant]
  6. SYNTHROID [Concomitant]

REACTIONS (7)
  - ABDOMINAL DISTENSION [None]
  - ABDOMINAL PAIN [None]
  - COLITIS [None]
  - CONSTIPATION [None]
  - DIARRHOEA [None]
  - NAUSEA [None]
  - RECTAL HAEMORRHAGE [None]
